FAERS Safety Report 8125005-9 (Version None)
Quarter: 2012Q1

REPORT INFORMATION
  Report Type: 
  Country: None (occurrence: None)
  Receive Date: 20120209
  Receipt Date: 20120131
  Transmission Date: 20120608
  Serious: Yes (Hospitalization, Other)
  Sender: FDA-Public Use
  Company Number: FR-BAXTER-2011BH035877

PATIENT
  Age: 68 Year
  Sex: Male
  Weight: 63 kg

DRUGS (22)
  1. FEIBA [Suspect]
     Route: 042
     Dates: start: 20111125
  2. RITUXIMAB [Suspect]
     Indication: ACQUIRED HAEMOPHILIA
     Route: 042
     Dates: start: 20111104, end: 20111124
  3. FEIBA [Suspect]
     Route: 042
     Dates: start: 20111030, end: 20111111
  4. FEIBA [Suspect]
     Route: 042
     Dates: start: 20111030, end: 20111111
  5. FEIBA [Suspect]
     Route: 042
     Dates: start: 20111101, end: 20111101
  6. FEIBA [Suspect]
     Route: 042
     Dates: start: 20111101, end: 20111101
  7. FEIBA [Suspect]
     Indication: HAEMATOMA
     Route: 042
     Dates: start: 20111027, end: 20111029
  8. FEIBA [Suspect]
     Indication: ACQUIRED HAEMOPHILIA
     Route: 042
     Dates: start: 20111027, end: 20111029
  9. FEIBA [Suspect]
     Route: 042
     Dates: start: 20111101, end: 20111101
  10. FEIBA [Suspect]
     Route: 042
     Dates: start: 20111125
  11. CORTICOSTEROID [Concomitant]
     Indication: ACQUIRED HAEMOPHILIA
     Route: 048
     Dates: start: 20111029
  12. FEIBA [Suspect]
     Indication: HAEMARTHROSIS
     Route: 042
     Dates: start: 20111027, end: 20111029
  13. FEIBA [Suspect]
     Route: 042
     Dates: start: 20111030, end: 20111111
  14. FEIBA [Suspect]
     Route: 042
     Dates: start: 20111116, end: 20111116
  15. FEIBA [Suspect]
     Route: 042
     Dates: start: 20111030, end: 20111111
  16. FEIBA [Suspect]
     Route: 042
     Dates: start: 20111116, end: 20111116
  17. FEIBA [Suspect]
     Route: 042
     Dates: start: 20111101, end: 20111101
  18. FEIBA [Suspect]
     Route: 042
     Dates: start: 20111125
  19. FEIBA [Suspect]
     Route: 042
     Dates: start: 20111027, end: 20111029
  20. FEIBA [Suspect]
     Route: 042
     Dates: start: 20111116, end: 20111116
  21. FEIBA [Suspect]
     Route: 042
     Dates: start: 20111116, end: 20111116
  22. FEIBA [Suspect]
     Route: 042
     Dates: start: 20111125

REACTIONS (1)
  - BLOOD FIBRINOGEN DECREASED [None]
